FAERS Safety Report 7213484-0 (Version None)
Quarter: 2011Q1

REPORT INFORMATION
  Report Type: 
  Country: None (occurrence: None)
  Receive Date: 20110106
  Receipt Date: 20101223
  Transmission Date: 20110831
  Serious: Yes (Hospitalization)
  Sender: FDA-Public Use
  Company Number: PHHY2010CH87686

PATIENT
  Age: 27 Year
  Sex: Male

DRUGS (2)
  1. CO-AMOXI-MEPHA [Suspect]
     Indication: ACUTE TONSILLITIS
     Dosage: 625 MG, TID
     Route: 048
     Dates: start: 20101121, end: 20101124
  2. PONSTAN [Concomitant]
     Dosage: 500 MG, 2 TIMES A DAY

REACTIONS (6)
  - HYPERSENSITIVITY [None]
  - MYOCARDITIS [None]
  - CHEST PAIN [None]
  - DYSPHAGIA [None]
  - PERITONSILLAR ABSCESS [None]
  - TACHYCARDIA [None]
